FAERS Safety Report 24084235 (Version 1)
Quarter: 2024Q3

REPORT INFORMATION
  Report Type: Spontaneous
  Country: IT (occurrence: IT)
  Receive Date: 20240712
  Receipt Date: 20240712
  Transmission Date: 20241016
  Serious: No
  Sender: PIERRE FABRE MEDICAMENT
  Company Number: IT-PFM-2022-02819

PATIENT
  Age: 1 Year
  Sex: Female

DRUGS (11)
  1. PROPRANOLOL [Suspect]
     Active Substance: PROPRANOLOL HYDROCHLORIDE
     Indication: Junctional ectopic tachycardia
     Dosage: 4 MG/KG, PER DAY
     Route: 065
  2. PROPRANOLOL [Suspect]
     Active Substance: PROPRANOLOL HYDROCHLORIDE
     Indication: Off label use
     Dosage: 4 MG/KG/DAY
     Route: 065
  3. AMIODARONE [Suspect]
     Active Substance: AMIODARONE
     Indication: Junctional ectopic tachycardia
     Dosage: 300 MG/M2/DAY
     Route: 065
  4. AMIODARONE [Suspect]
     Active Substance: AMIODARONE
     Dosage: 350 MG/M2/DAY
     Route: 065
  5. FLECAINIDE [Suspect]
     Active Substance: FLECAINIDE
     Indication: Junctional ectopic tachycardia
     Dosage: 5 MG/KG, PER DAY
     Route: 065
  6. FLECAINIDE [Suspect]
     Active Substance: FLECAINIDE
     Dosage: 5 MG/KG, PER DAY
     Route: 065
  7. FLECAINIDE [Suspect]
     Active Substance: FLECAINIDE
     Dosage: 4 MG/KG, PER DAY
     Route: 065
  8. IVABRADINE [Suspect]
     Active Substance: IVABRADINE
     Indication: Junctional ectopic tachycardia
     Dosage: 0.25 MG/KG/DAY
     Route: 065
  9. IVABRADINE [Suspect]
     Active Substance: IVABRADINE
     Dosage: 0.25 MG/KG/DAY
     Route: 065
  10. IVABRADINE [Suspect]
     Active Substance: IVABRADINE
     Dosage: 0.3 MG/KG/DAY
     Route: 065
  11. IVABRADINE [Suspect]
     Active Substance: IVABRADINE
     Dosage: 0.25 MG/KG/DAY
     Route: 065

REACTIONS (2)
  - Drug ineffective for unapproved indication [Unknown]
  - Off label use [Unknown]
